FAERS Safety Report 15541431 (Version 1)
Quarter: 2018Q4

REPORT INFORMATION
  Report Type: Spontaneous
  Country: DZ (occurrence: DZ)
  Receive Date: 20181023
  Receipt Date: 20181023
  Transmission Date: 20190205
  Serious: Yes (Life-Threatening)
  Sender: FDA-Public Use
  Company Number: DZ-JNJFOC-20180842254

PATIENT
  Age: 75 Year
  Sex: Male
  Weight: 74 kg

DRUGS (4)
  1. ZYTIGA [Suspect]
     Active Substance: ABIRATERONE ACETATE
     Indication: HORMONE-REFRACTORY PROSTATE CANCER
     Route: 048
     Dates: start: 20180722, end: 20180808
  2. PREDNISONE. [Concomitant]
     Active Substance: PREDNISONE
     Indication: HORMONE-REFRACTORY PROSTATE CANCER
     Route: 048
     Dates: start: 20180722
  3. DENOSUMAB [Concomitant]
     Active Substance: DENOSUMAB
     Indication: METASTASES TO BONE
     Dosage: DAY 1 AND DAY 21
     Route: 058
     Dates: start: 20180722
  4. ZYTIGA [Suspect]
     Active Substance: ABIRATERONE ACETATE
     Indication: METASTASES TO BONE
     Route: 048
     Dates: start: 20180722, end: 20180808

REACTIONS (1)
  - Atrial fibrillation [Recovering/Resolving]

NARRATIVE: CASE EVENT DATE: 20180808
